FAERS Safety Report 8010768-3 (Version None)
Quarter: 2011Q4

REPORT INFORMATION
  Report Type: 
  Country: None (occurrence: None)
  Receive Date: 20111228
  Receipt Date: 20111214
  Transmission Date: 20120403
  Serious: Yes (Hospitalization)
  Sender: FDA-Public Use
  Company Number: RU-RANBAXY-2011R3-51271

PATIENT

DRUGS (2)
  1. CLARITHROMYCIN [Suspect]
     Indication: UREAPLASMA INFECTION
     Dosage: 500 MG, BID
     Route: 048
     Dates: start: 20111206, end: 20111214
  2. METRONIDAZOLE [Concomitant]
     Indication: UREAPLASMA INFECTION
     Dosage: 1000 MG, DAILY
     Route: 048
     Dates: start: 20111206, end: 20111214

REACTIONS (1)
  - ANGIOEDEMA [None]
